APPROVED DRUG PRODUCT: SULFATRIM-SS
Active Ingredient: SULFAMETHOXAZOLE; TRIMETHOPRIM
Strength: 400MG;80MG
Dosage Form/Route: TABLET;ORAL
Application: A070065 | Product #002
Applicant: SUPERPHARM CORP
Approved: Jun 24, 1985 | RLD: No | RS: No | Type: DISCN